FAERS Safety Report 17516584 (Version 14)
Quarter: 2025Q3

REPORT INFORMATION
  Report Type: Spontaneous
  Country: US (occurrence: US)
  Receive Date: 20200309
  Receipt Date: 20250717
  Transmission Date: 20251020
  Serious: No
  Sender: VERTEX
  Company Number: US-VERTEX PHARMACEUTICALS-2020-001871

PATIENT
  Age: 44 Year
  Sex: Female
  Weight: 66 kg

DRUGS (31)
  1. TRIKAFTA [Suspect]
     Active Substance: ELEXACAFTOR\IVACAFTOR\TEZACAFTOR
     Indication: Cystic fibrosis
     Dosage: 2 TABLETS AM; 1 TABLET PM
     Route: 048
     Dates: start: 20191112, end: 202102
  2. TRIKAFTA [Suspect]
     Active Substance: ELEXACAFTOR\IVACAFTOR\TEZACAFTOR
     Route: 048
     Dates: start: 202102, end: 2021
  3. TRIKAFTA [Suspect]
     Active Substance: ELEXACAFTOR\IVACAFTOR\TEZACAFTOR
     Route: 048
     Dates: start: 2021, end: 2021
  4. TRIKAFTA [Suspect]
     Active Substance: ELEXACAFTOR\IVACAFTOR\TEZACAFTOR
     Route: 048
     Dates: start: 2021, end: 2021
  5. TRIKAFTA [Suspect]
     Active Substance: ELEXACAFTOR\IVACAFTOR\TEZACAFTOR
     Dosage: 1 ORANGE TAB AM; 1 ORANGE TAB PM WITH NO BLUE TAB
     Route: 048
     Dates: start: 2021
  6. TRIKAFTA [Suspect]
     Active Substance: ELEXACAFTOR\IVACAFTOR\TEZACAFTOR
     Dosage: 1 ORANGE TAB IN AM AND HALF ORANGE TAB IN PM
     Route: 048
  7. TRIKAFTA [Suspect]
     Active Substance: ELEXACAFTOR\IVACAFTOR\TEZACAFTOR
     Dosage: HALF OF PILL TWICE A DAY
     Route: 048
  8. TRIKAFTA [Suspect]
     Active Substance: ELEXACAFTOR\IVACAFTOR\TEZACAFTOR
     Dosage: HALF ORANGE TABLET IN MORNING AND EVENING
     Route: 048
  9. TRIKAFTA [Suspect]
     Active Substance: ELEXACAFTOR\IVACAFTOR\TEZACAFTOR
     Dosage: 1 HALF ORANGE TABLET TWICE DAILY
     Route: 048
  10. ULTRASE [Concomitant]
     Active Substance: PANCRELIPASE
  11. DUONEB [Concomitant]
     Active Substance: ALBUTEROL SULFATE\IPRATROPIUM BROMIDE
  12. NAC [Concomitant]
  13. LYSINE [Concomitant]
     Active Substance: LYSINE
  14. BACTRIM [Concomitant]
     Active Substance: SULFAMETHOXAZOLE\TRIMETHOPRIM
  15. VITAMIN C [Concomitant]
     Active Substance: ASCORBIC ACID
  16. PULMOZYME [Concomitant]
     Active Substance: DORNASE ALFA
  17. ZENPEP [Concomitant]
     Active Substance: PANCRELIPASE AMYLASE\PANCRELIPASE LIPASE\PANCRELIPASE PROTEASE
  18. SYMBICORT [Concomitant]
     Active Substance: BUDESONIDE\FORMOTEROL FUMARATE DIHYDRATE
  19. LUGOL [Concomitant]
     Active Substance: IODINE\POTASSIUM IODIDE
  20. MAGNESIUM [Concomitant]
     Active Substance: MAGNESIUM
  21. VITAMIN K [Concomitant]
     Active Substance: PHYTONADIONE
  22. CURCUMIN [Concomitant]
     Active Substance: CURCUMIN
  23. CAPSICUM\HERBALS [Concomitant]
     Active Substance: CAPSICUM\HERBALS
  24. ALLEGRA D-12 HOUR [Concomitant]
     Active Substance: FEXOFENADINE HYDROCHLORIDE\PSEUDOEPHEDRINE HYDROCHLORIDE
  25. VITAMIN D3 [Concomitant]
     Active Substance: CHOLECALCIFEROL
  26. ADVAIR HFA [Concomitant]
     Active Substance: FLUTICASONE PROPIONATE\SALMETEROL XINAFOATE
  27. CROMOLYN SODIUM [Concomitant]
     Active Substance: CROMOLYN SODIUM
  28. LEVALBUTEROL HYDROCHLORIDE [Concomitant]
     Active Substance: LEVALBUTEROL HYDROCHLORIDE
  29. ACETYLCYSTEINE [Concomitant]
     Active Substance: ACETYLCYSTEINE
  30. ALLEGRA D-12 HOUR [Concomitant]
     Active Substance: FEXOFENADINE HYDROCHLORIDE\PSEUDOEPHEDRINE HYDROCHLORIDE
  31. LEVALBUTEROL [Concomitant]
     Active Substance: LEVALBUTEROL

REACTIONS (11)
  - Weight increased [Unknown]
  - Abdominal discomfort [Unknown]
  - Nausea [Unknown]
  - Migraine [Recovered/Resolved]
  - Alopecia [Recovered/Resolved]
  - Heavy menstrual bleeding [Unknown]
  - Vomiting [Unknown]
  - Vision blurred [Not Recovered/Not Resolved]
  - Fatigue [Not Recovered/Not Resolved]
  - Abdominal distension [Unknown]
  - Acne [Unknown]

NARRATIVE: CASE EVENT DATE: 20191101
